FAERS Safety Report 17313959 (Version 1)
Quarter: 2020Q1

REPORT INFORMATION
  Report Type: Spontaneous
  Country: US (occurrence: US)
  Receive Date: 20200107
  Receipt Date: 20200107
  Transmission Date: 20200409
  Serious: Yes (Hospitalization)
  Sender: FDA-Public Use
  Company Number: None

PATIENT
  Age: 36 Year
  Sex: Male

DRUGS (13)
  1. ZENPEP [Concomitant]
     Active Substance: PANCRELIPASE AMYLASE\PANCRELIPASE LIPASE\PANCRELIPASE PROTEASE
  2. DRONABINOL. [Concomitant]
     Active Substance: DRONABINOL
  3. PROAIR HFA [Concomitant]
     Active Substance: ALBUTEROL SULFATE
  4. TAMSULOSIN [Concomitant]
     Active Substance: TAMSULOSIN
  5. TWOCAL HN [Concomitant]
     Active Substance: DIETARY SUPPLEMENT
  6. HYDROCO/APAP [Concomitant]
     Active Substance: ACETAMINOPHEN\HYDROCODONE
  7. TRIKAFTA [Suspect]
     Active Substance: ELEXACAFTOR\IVACAFTOR\TEZACAFTOR
     Indication: CYSTIC FIBROSIS
     Dosage: ?          OTHER DOSE:2 TABS (1005075MG ;?
     Route: 048
     Dates: start: 20191220
  8. CLOMIPRAMINE [Concomitant]
     Active Substance: CLOMIPRAMINE
  9. TIZANIDINE. [Concomitant]
     Active Substance: TIZANIDINE
  10. MIRTAZAPINE. [Concomitant]
     Active Substance: MIRTAZAPINE
  11. PULMOZYME [Concomitant]
     Active Substance: DORNASE ALFA
  12. SOD CHL 7% [Concomitant]
  13. TOBRAMYCIN NEB SLN [Concomitant]

REACTIONS (2)
  - Pneumonia [None]
  - Sepsis [None]

NARRATIVE: CASE EVENT DATE: 201911
